FAERS Safety Report 6510691-7 (Version None)
Quarter: 2009Q4

REPORT INFORMATION
  Report Type: 
  Country: None (occurrence: None)
  Receive Date: 20091222
  Receipt Date: 20091020
  Transmission Date: 20100525
  Serious: No
  Sender: FDA-Public Use
  Company Number: US-ASTRAZENECA-2009SE21267

PATIENT
  Age: 788 Month
  Sex: Female
  Weight: 65.8 kg

DRUGS (2)
  1. CRESTOR [Suspect]
     Indication: BLOOD CHOLESTEROL
     Route: 048
     Dates: start: 20090601, end: 20090601
  2. CRESTOR [Suspect]
     Route: 048
     Dates: start: 20090801, end: 20090901

REACTIONS (5)
  - ANXIETY [None]
  - CONFUSIONAL STATE [None]
  - EMOTIONAL DISTRESS [None]
  - MENTAL IMPAIRMENT [None]
  - TENSION [None]
